FAERS Safety Report 6505616-4 (Version None)
Quarter: 2009Q4

REPORT INFORMATION
  Report Type: 
  Country: None (occurrence: None)
  Receive Date: 20091217
  Receipt Date: 20091217
  Transmission Date: 20100525
  Serious: Yes (Other)
  Sender: FDA-Public Use
  Company Number: None

PATIENT
  Age: 46 Year
  Sex: Male
  Weight: 69.9 kg

DRUGS (1)
  1. ERBITUX [Suspect]
     Indication: HEAD AND NECK CANCER
     Dosage: 250MG/M2 -470MG- QWEEK IV
     Route: 042
     Dates: start: 20091019, end: 20091124

REACTIONS (3)
  - DERMATITIS ACNEIFORM [None]
  - PRURITUS [None]
  - TENDERNESS [None]
